FAERS Safety Report 9797901 (Version 1)
Quarter: 2014Q1

REPORT INFORMATION
  Report Type: Spontaneous
  Country: US (occurrence: US)
  Receive Date: 20140106
  Receipt Date: 20140106
  Transmission Date: 20141002
  Serious: No
  Sender: FDA-Public Use
  Company Number: US-009507513-1401USA000666

PATIENT
  Sex: Female

DRUGS (3)
  1. DULERA [Suspect]
     Indication: ASTHMA
     Dosage: 2 DF, BID
     Route: 055
     Dates: start: 201306
  2. MONTELUKAST SODIUM [Concomitant]
  3. CRESTOR [Concomitant]

REACTIONS (3)
  - Bronchitis [Recovering/Resolving]
  - Drug dose omission [Unknown]
  - Product quality issue [Unknown]
